FAERS Safety Report 20149014 (Version 1)
Quarter: 2021Q4

REPORT INFORMATION
  Report Type: Spontaneous
  Country: CA (occurrence: CA)
  Receive Date: 20211204
  Receipt Date: 20211204
  Transmission Date: 20220303
  Serious: Yes (Other)
  Sender: FDA-Public Use
  Company Number: CA-TEVA-2021-CA-1983130

PATIENT
  Sex: Male

DRUGS (12)
  1. OMEPRAZOLE MAGNESIUM [Suspect]
     Active Substance: OMEPRAZOLE MAGNESIUM
     Indication: Product used for unknown indication
     Route: 048
  2. CALQUENCE [Suspect]
     Active Substance: ACALABRUTINIB
     Indication: Chronic lymphocytic leukaemia
     Dosage: 200 MILLIGRAM DAILY;
     Route: 048
  3. CANDESARTAN CILEXETIL\HYDROCHLOROTHIAZIDE [Concomitant]
     Active Substance: CANDESARTAN CILEXETIL\HYDROCHLOROTHIAZIDE
  4. ATENOLOL [Concomitant]
     Active Substance: ATENOLOL
  5. CHOLECALCIFEROL [Concomitant]
     Active Substance: CHOLECALCIFEROL
  6. COBAMAMIDE [Concomitant]
     Active Substance: COBAMAMIDE
  7. FINASTERIDE [Concomitant]
     Active Substance: FINASTERIDE
  8. LUTEIN [Concomitant]
     Active Substance: LUTEIN
  9. OLANZAPINE [Concomitant]
     Active Substance: OLANZAPINE
  10. ROSUVASTATIN CALCIUM [Concomitant]
     Active Substance: ROSUVASTATIN CALCIUM
  11. TAMSULOSIN [Concomitant]
     Active Substance: TAMSULOSIN
  12. ZOPICLONE [Concomitant]
     Active Substance: ZOPICLONE

REACTIONS (3)
  - Dyspepsia [Unknown]
  - Gastrooesophageal reflux disease [Unknown]
  - Rebound effect [Unknown]
